FAERS Safety Report 11123562 (Version 2)
Quarter: 2016Q2

REPORT INFORMATION
  Report Type: Spontaneous
  Country: US (occurrence: US)
  Receive Date: 20150519
  Receipt Date: 20160527
  Transmission Date: 20160815
  Serious: Yes (Other)
  Sender: FDA-Public Use
  Company Number: US-LUNDBECK-DKLU1112571

PATIENT
  Age: 26 Year
  Sex: Female

DRUGS (3)
  1. ONFI [Suspect]
     Active Substance: CLOBAZAM
     Route: 048
     Dates: start: 201502
  2. ONFI [Suspect]
     Active Substance: CLOBAZAM
     Indication: EPILEPSY
     Route: 065
     Dates: start: 20150424
  3. VIMPAT [Concomitant]
     Active Substance: LACOSAMIDE
     Indication: PRODUCT USED FOR UNKNOWN INDICATION
     Route: 065

REACTIONS (3)
  - Drug withdrawal convulsions [Unknown]
  - Drug dose omission [Unknown]
  - Seizure [Unknown]

NARRATIVE: CASE EVENT DATE: 20150511
